FAERS Safety Report 20601701 (Version 1)
Quarter: 2022Q1

REPORT INFORMATION
  Report Type: Spontaneous
  Country: US (occurrence: US)
  Receive Date: 20220316
  Receipt Date: 20220316
  Transmission Date: 20220423
  Serious: No
  Sender: FDA-Public Use
  Company Number: US-JNJFOC-20220311891

PATIENT
  Age: 66 Year
  Sex: Male

DRUGS (2)
  1. DARZALEX [Suspect]
     Active Substance: DARATUMUMAB
     Indication: Product used for unknown indication
     Dosage: DARRZALEX 100MG INFORMATION: LHS2904 (2 VIALS), LBS3218 (1 VIAL), EXPIRATIONS JUL2023 (2 VIALS), JAN
     Route: 065
  2. DARZALEX [Suspect]
     Active Substance: DARATUMUMAB
     Dosage: DARZALEX 400MG INFORMATION: 21C102 (4 VIALS), 21C082 (1 VIAL), JUL2023 (5 VIALS)
     Route: 065

REACTIONS (2)
  - Product preparation issue [Unknown]
  - Product quality issue [Unknown]

NARRATIVE: CASE EVENT DATE: 20220302
